FAERS Safety Report 19991435 (Version 1)
Quarter: 2021Q4

REPORT INFORMATION
  Report Type: Spontaneous
  Country: US (occurrence: US)
  Receive Date: 20211025
  Receipt Date: 20211025
  Transmission Date: 20220303
  Serious: Yes (Other)
  Sender: FDA-Public Use
  Company Number: US-MERCK HEALTHCARE KGAA-9273701

PATIENT
  Age: 37 Year
  Sex: Male

DRUGS (1)
  1. MAVENCLAD [Suspect]
     Active Substance: CLADRIBINE
     Indication: Multiple sclerosis
     Route: 048
     Dates: start: 20210927

REACTIONS (3)
  - Neuropathy peripheral [Unknown]
  - Coccydynia [Unknown]
  - Electric shock sensation [Unknown]

NARRATIVE: CASE EVENT DATE: 20211001
